FAERS Safety Report 17055428 (Version 3)
Quarter: 2019Q4

REPORT INFORMATION
  Report Type: Spontaneous
  Country: US (occurrence: US)
  Receive Date: 20191120
  Receipt Date: 20191231
  Transmission Date: 20200122
  Serious: No
  Sender: FDA-Public Use
  Company Number: US-VERTEX PHARMACEUTICALS-2019-011352

PATIENT
  Age: 16 Year
  Sex: Male

DRUGS (1)
  1. TRIKAFTA [Suspect]
     Active Substance: ELEXACAFTOR\IVACAFTOR\TEZACAFTOR
     Indication: CYSTIC FIBROSIS
     Dosage: ELEXACFTOR 100MG/TEZACAFTOR 50MG/IVACAFTOR 75MG; IVACAFTOR 75 MG; UNK FREQ
     Route: 048
     Dates: start: 20191105, end: 20191202

REACTIONS (3)
  - Conjunctivitis [Recovering/Resolving]
  - Influenza like illness [Recovered/Resolved]
  - Malaise [Recovering/Resolving]

NARRATIVE: CASE EVENT DATE: 20191111
